FAERS Safety Report 6841374-1 (Version None)
Quarter: 2010Q3

REPORT INFORMATION
  Report Type: 
  Country: None (occurrence: None)
  Receive Date: 20100714
  Receipt Date: 20071217
  Transmission Date: 20110219
  Serious: No
  Sender: FDA-Public Use
  Company Number: US-PFIZER INC-2007052955

PATIENT
  Age: 50 Year
  Sex: Female
  Weight: 50 kg

DRUGS (7)
  1. CHANTIX [Suspect]
     Indication: SMOKING CESSATION THERAPY
     Route: 048
     Dates: start: 20070101
  2. CHANTIX [Suspect]
     Indication: TOBACCO ABUSE
  3. CHANTIX [Suspect]
     Indication: ALLERGIC SINUSITIS
  4. HYDROCHLOROTHIAZIDE [Concomitant]
     Indication: MENIERE'S DISEASE
  5. THYROID TAB [Concomitant]
  6. THYROID TAB [Concomitant]
  7. PRAZINA [Concomitant]

REACTIONS (6)
  - CONSTIPATION [None]
  - DECREASED APPETITE [None]
  - MALAISE [None]
  - NAUSEA [None]
  - PAIN [None]
  - SLEEP DISORDER [None]
